FAERS Safety Report 8120466-3 (Version None)
Quarter: 2012Q1

REPORT INFORMATION
  Report Type: 
  Country: None (occurrence: None)
  Receive Date: 20120203
  Receipt Date: 20120121
  Transmission Date: 20120608
  Serious: Yes (Hospitalization)
  Sender: FDA-Public Use
  Company Number: 2012AP000196

PATIENT
  Age: 20 Year
  Sex: Male

DRUGS (4)
  1. RISPERIDONE [Suspect]
     Indication: PSYCHOPATHIC PERSONALITY
     Dosage: 0.25 MG;AM, 1 MG;PM
  2. RISPERIDONE [Suspect]
     Indication: MENTAL RETARDATION
     Dosage: 0.25 MG;AM, 1 MG;PM
  3. PREDNISONE TAB [Concomitant]
  4. FINGOLIMOD [Suspect]
     Indication: MULTIPLE SCLEROSIS
     Dosage: 0.5 MG

REACTIONS (8)
  - BRADYCARDIA [None]
  - CONVULSION [None]
  - UNRESPONSIVE TO STIMULI [None]
  - CARDIAC ARREST [None]
  - MALAISE [None]
  - DRUG INTERACTION [None]
  - MULTIPLE SCLEROSIS RELAPSE [None]
  - NAUSEA [None]
